FAERS Safety Report 21000713 (Version 5)
Quarter: 2022Q3

REPORT INFORMATION
  Report Type: Report from Study
  Country: US (occurrence: US)
  Receive Date: 20220623
  Receipt Date: 20220726
  Transmission Date: 20221027
  Serious: Yes (Hospitalization, Other)
  Sender: FDA-Public Use
  Company Number: US-BoehringerIngelheim-2022-BI-178136

PATIENT
  Age: 64 Year
  Sex: Female

DRUGS (6)
  1. STIOLTO RESPIMAT [Suspect]
     Active Substance: OLODATEROL HYDROCHLORIDE\TIOTROPIUM BROMIDE MONOHYDRATE
     Indication: Chronic obstructive pulmonary disease
     Route: 055
     Dates: start: 201601
  2. XANAX [Concomitant]
     Active Substance: ALPRAZOLAM
     Indication: Panic disorder
     Dosage: PRN
  3. XANAX [Concomitant]
     Active Substance: ALPRAZOLAM
     Indication: Anxiety disorder
  4. VALIUM [Concomitant]
     Active Substance: DIAZEPAM
     Indication: Panic disorder
     Dosage: PRN
  5. VALIUM [Concomitant]
     Active Substance: DIAZEPAM
     Indication: Anxiety disorder
  6. PLAVIX [Concomitant]
     Active Substance: CLOPIDOGREL BISULFATE
     Indication: Anticoagulant therapy
     Dates: start: 202204

REACTIONS (16)
  - Myocardial infarction [Unknown]
  - Sepsis [Recovered/Resolved]
  - Cardiac failure [Recovered/Resolved]
  - Respiratory failure [Recovered/Resolved]
  - Myocardial infarction [Recovered/Resolved]
  - Cardiac failure [Unknown]
  - Respiratory failure [Unknown]
  - Myocardial infarction [Unknown]
  - Transcatheter aortic valve implantation [Unknown]
  - Dyspnoea [Not Recovered/Not Resolved]
  - Chronic obstructive pulmonary disease [Unknown]
  - Upper respiratory tract infection [Unknown]
  - Mobility decreased [Unknown]
  - Asthenia [Not Recovered/Not Resolved]
  - Fatigue [Not Recovered/Not Resolved]
  - Dyspnoea [Unknown]

NARRATIVE: CASE EVENT DATE: 20220101
